FAERS Safety Report 8555419-4 (Version None)
Quarter: 2012Q3

REPORT INFORMATION
  Report Type: 
  Country: None (occurrence: None)
  Receive Date: 20120731
  Receipt Date: 20110825
  Transmission Date: 20120928
  Serious: Yes (Other)
  Sender: FDA-Public Use
  Company Number: US-ASTRAZENECA-2011SE12458

PATIENT
  Sex: Female

DRUGS (10)
  1. TRAZODONE HYDROCHLORIDE [Concomitant]
     Dosage: 50MG-150MG
     Dates: start: 20011003
  2. FUROSEMIDE [Concomitant]
     Dates: start: 20010907
  3. PROPOXYPHENE NAPSYLATE AND ACETAMINOPHEN [Concomitant]
     Dates: start: 20010912
  4. NITROGLYCERIN [Concomitant]
     Dates: start: 20010912
  5. NEURONTIN [Concomitant]
     Dates: start: 20010912
  6. MS CONTIN [Concomitant]
     Dates: start: 20011004
  7. SEROQUEL [Suspect]
     Dosage: 100-300 MG
     Route: 048
     Dates: start: 20011005
  8. TRICOR [Concomitant]
     Dates: start: 20010912
  9. ZANAFLEX [Concomitant]
     Dates: start: 20011004
  10. POTASSIUM CL [Concomitant]
     Dates: start: 20010907

REACTIONS (3)
  - TYPE 2 DIABETES MELLITUS [None]
  - DIABETIC COMA [None]
  - PANCREATITIS [None]
